FAERS Safety Report 8908507 (Version 1)
Quarter: 2012Q4

REPORT INFORMATION
  Report Type: 
  Country: UA (occurrence: US)
  Receive Date: 20121114
  Receipt Date: 20121114
  Transmission Date: 20130627
  Serious: No
  Sender: FDA-Public Use
  Company Number: US-VERTEX PHARMACEUTICAL INC.-2012-024461

PATIENT
  Sex: Male

DRUGS (3)
  1. VX-950 (TELAPREVIR) [Suspect]
     Indication: HEPATITIS C
     Dosage: UNK
     Route: 048
     Dates: start: 20121009
  2. PEGASYS [Suspect]
     Indication: HEPATITIS C
     Dosage: UNK
     Route: 058
     Dates: start: 20121009
  3. RIBAVIRIN [Suspect]
     Indication: HEPATITIS C
     Dosage: UNK
     Route: 048
     Dates: start: 20121009

REACTIONS (4)
  - Influenza like illness [Not Recovered/Not Resolved]
  - Dyspnoea [Not Recovered/Not Resolved]
  - Weight decreased [Not Recovered/Not Resolved]
  - Fatigue [Not Recovered/Not Resolved]
